FAERS Safety Report 6719819-7 (Version None)
Quarter: 2010Q2

REPORT INFORMATION
  Report Type: 
  Country: None (occurrence: None)
  Receive Date: 20100511
  Receipt Date: 20100428
  Transmission Date: 20101027
  Serious: Yes (Hospitalization, Other)
  Sender: FDA-Public Use
  Company Number: PHHY2010JP23032

PATIENT
  Sex: Female

DRUGS (9)
  1. NEORAL [Suspect]
     Indication: DERMATOMYOSITIS
     Dosage: 100 MG DAILY
     Route: 048
     Dates: start: 20091218, end: 20100301
  2. COTRIM [Interacting]
     Indication: PNEUMOCYSTIS JIROVECI PNEUMONIA
     Dosage: 12 DF, UNK
     Route: 048
     Dates: start: 20100222
  3. COTRIM [Interacting]
     Indication: ANTIFUNGAL PROPHYLAXIS
     Dosage: 3 DF, UNK
     Route: 048
  4. FUNGUARD [Interacting]
     Indication: FUNGAL INFECTION
     Dosage: 100 MG/DAY
     Route: 041
     Dates: start: 20100219, end: 20100310
  5. DENOSINE [Concomitant]
     Indication: CYTOMEGALOVIRUS INFECTION
     Dosage: 400 MG/DAY
     Route: 041
     Dates: start: 20100128, end: 20100215
  6. PREDONINE [Concomitant]
     Indication: DERMATOMYOSITIS
     Dosage: 60 MG/DAY
     Route: 048
     Dates: start: 20091216, end: 20100124
  7. PREDONINE [Concomitant]
     Dosage: 50 MG/DAY
     Route: 048
     Dates: start: 20100124
  8. PREDONINE [Concomitant]
     Dosage: 40 MG/DAY
     Route: 048
  9. METHYLPREDNISOLONE 4MG TAB [Concomitant]
     Dosage: 1000 MG/DAY
     Dates: start: 20100222, end: 20100224

REACTIONS (7)
  - CANDIDIASIS [None]
  - CYTOMEGALOVIRUS INFECTION [None]
  - DRUG INTERACTION [None]
  - IMMUNOSUPPRESSANT DRUG LEVEL INCREASED [None]
  - INTERSTITIAL LUNG DISEASE [None]
  - PNEUMOCYSTIS JIROVECI PNEUMONIA [None]
  - RESPIRATORY FAILURE [None]
